FAERS Safety Report 7135529-9 (Version None)
Quarter: 2010Q4

REPORT INFORMATION
  Report Type: 
  Country: None (occurrence: None)
  Receive Date: 20101203
  Receipt Date: 20101119
  Transmission Date: 20110411
  Serious: Yes (Life-Threatening, Hospitalization, Disabling, Other)
  Sender: FDA-Public Use
  Company Number: US-ELI_LILLY_AND_COMPANY-US201011005622

PATIENT
  Sex: Female

DRUGS (2)
  1. PROZAC [Suspect]
     Indication: BIPOLAR DISORDER
     Dosage: 20 MG, DAILY (1/D)
     Dates: end: 19990101
  2. PROZAC [Suspect]
     Dosage: 20 MG, DAILY (1/D)
     Dates: end: 20000101

REACTIONS (7)
  - APGAR SCORE LOW [None]
  - CONVULSION [None]
  - DISTURBANCE IN ATTENTION [None]
  - DRUG EXPOSURE DURING PREGNANCY [None]
  - INFANTILE APNOEIC ATTACK [None]
  - LEARNING DISORDER [None]
  - PALLOR [None]
